FAERS Safety Report 6833555-8 (Version None)
Quarter: 2010Q3

REPORT INFORMATION
  Report Type: 
  Country: None (occurrence: None)
  Receive Date: 20100712
  Receipt Date: 20070327
  Transmission Date: 20110219
  Serious: No
  Sender: FDA-Public Use
  Company Number: US-PFIZER INC-2007025993

PATIENT
  Sex: Female
  Weight: 99.79 kg

DRUGS (5)
  1. CHANTIX [Suspect]
     Indication: SMOKING CESSATION THERAPY
     Dates: start: 20070310
  2. LEXAPRO [Concomitant]
  3. CRESTOR [Concomitant]
  4. FEMHRT [Concomitant]
  5. CORGARETIC [Concomitant]

REACTIONS (1)
  - HEADACHE [None]
